FAERS Safety Report 16749859 (Version 2)
Quarter: 2020Q1

REPORT INFORMATION
  Report Type: Spontaneous
  Country: IT (occurrence: IT)
  Receive Date: 20190828
  Receipt Date: 20200117
  Transmission Date: 20200409
  Serious: Yes (Other)
  Sender: FDA-Public Use
  Company Number: PHHY2019IT198908

PATIENT
  Age: 47 Year
  Sex: Female

DRUGS (3)
  1. LEVOFLOXACIN. [Suspect]
     Active Substance: LEVOFLOXACIN
     Indication: EAR INFECTION
     Dosage: 500 MG, (TOTAL)
     Route: 048
     Dates: start: 20180918, end: 20180918
  2. CEFIXORAL [Suspect]
     Active Substance: CEFIXIME
     Indication: EAR INFECTION
     Dosage: 400 MG, (TOTAL)
     Route: 065
     Dates: start: 20180918, end: 20180918
  3. AULIN [Concomitant]
     Active Substance: NIMESULIDE
     Indication: EAR PAIN
     Dosage: 1 DF, (TOTAL)
     Route: 048

REACTIONS (4)
  - Eyelid oedema [Recovered/Resolved]
  - Dysphonia [Recovered/Resolved]
  - Paraesthesia oral [Recovered/Resolved]
  - Circumoral oedema [Recovered/Resolved]

NARRATIVE: CASE EVENT DATE: 20180918
